FAERS Safety Report 6316602-1 (Version None)
Quarter: 2009Q3

REPORT INFORMATION
  Report Type: 
  Country: None (occurrence: None)
  Receive Date: 20090820
  Receipt Date: 20090811
  Transmission Date: 20100115
  Serious: Yes (Death, Hospitalization, Other)
  Sender: FDA-Public Use
  Company Number: US-BAYER-US-2006-026214

PATIENT
  Age: 54 Year
  Sex: Male

DRUGS (2)
  1. BETASERON [Suspect]
     Indication: MULTIPLE SCLEROSIS
     Dosage: TOTAL DAILY DOSE: 8 MIU
     Route: 058
     Dates: start: 19950831, end: 20060804
  2. HYPERTENSIVE MEDICATIONS [Concomitant]
     Indication: HYPERTENSION

REACTIONS (7)
  - BRAIN STEM HAEMORRHAGE [None]
  - CEREBROVASCULAR ACCIDENT [None]
  - COMA [None]
  - DYSARTHRIA [None]
  - HERPES ZOSTER [None]
  - HYPOAESTHESIA ORAL [None]
  - INFECTION [None]
